FAERS Safety Report 8820467 (Version 3)
Quarter: 2013Q2

REPORT INFORMATION
  Report Type: Report from Study
  Country: JP (occurrence: JP)
  Receive Date: 20121002
  Receipt Date: 20130501
  Transmission Date: 20140414
  Serious: Yes (Hospitalization)
  Sender: FDA-Public Use
  Company Number: JP-009507513-2012SP028325

PATIENT
  Age: 65 Year
  Sex: Female
  Weight: 57 kg

DRUGS (10)
  1. PEGINTRON [Suspect]
     Indication: CHRONIC HEPATITIS C
     Dosage: 1.5 MICROGRAM PER KILOGRAM, QW
     Route: 058
     Dates: start: 20120405, end: 20120510
  2. REBETOL [Suspect]
     Indication: CHRONIC HEPATITIS C
     Dosage: 600 MG, QD
     Route: 048
     Dates: start: 20120405, end: 20120510
  3. TELAVIC [Suspect]
     Indication: CHRONIC HEPATITIS C
     Dosage: 2250 MG, QD
     Route: 048
     Dates: start: 20120405, end: 20120413
  4. TELAVIC [Suspect]
     Dosage: 1500 MG, QD
     Route: 048
     Dates: start: 20120414, end: 20120510
  5. MUCOSTA [Concomitant]
     Indication: PROPHYLAXIS
     Dosage: 100 MG/DAY, AS NEEDED
     Route: 048
     Dates: start: 20120405, end: 20120415
  6. LOXONIN [Concomitant]
     Indication: PYREXIA
     Dosage: DOSAGE: 60MILLIGRAMS PER KG PER DAY AS REQUIRED
     Route: 048
     Dates: start: 20120405, end: 20120415
  7. AMOBAN [Concomitant]
     Indication: INSOMNIA
     Dosage: DOSAGE: 7.5 MILLIGRAMS PER KILOGRAM PER DAY AS REQUIRED.
     Route: 048
     Dates: start: 20120406, end: 20120621
  8. PARIET [Concomitant]
     Dosage: 10 MG, QD
     Route: 048
     Dates: start: 20120412, end: 20120524
  9. BICARBON (SODIUM BICARBONATE) [Concomitant]
     Dosage: 2000 ML, QD
     Route: 042
     Dates: start: 20120412, end: 20120418
  10. CALONAL [Concomitant]
     Indication: PROPHYLAXIS
     Dosage: 500 MG/DAY, AS NEEDED
     Route: 048
     Dates: start: 20120416, end: 20120524

REACTIONS (2)
  - Blood uric acid increased [Recovered/Resolved]
  - Blood creatinine increased [Recovering/Resolving]
